FAERS Safety Report 21496178 (Version 1)
Quarter: 2022Q4

REPORT INFORMATION
  Report Type: Spontaneous
  Country: US (occurrence: US)
  Receive Date: 20221022
  Receipt Date: 20221022
  Transmission Date: 20230113
  Serious: Yes (Hospitalization, Other)
  Sender: FDA-Public Use
  Company Number: US-MLMSERVICE-20221010-3848693-1

PATIENT
  Age: 79 Year
  Sex: Female

DRUGS (2)
  1. CAPECITABINE [Suspect]
     Active Substance: CAPECITABINE
     Indication: Breast cancer recurrent
     Dosage: CUMULATIVE DOSE:4 CYCLICAL
  2. CAPECITABINE [Suspect]
     Active Substance: CAPECITABINE
     Indication: Triple negative breast cancer
     Dosage: CUMULATIVE DOSE:4 CYCLICAL

REACTIONS (1)
  - Pulmonary toxicity [Recovering/Resolving]
